FAERS Safety Report 8005121-2 (Version None)
Quarter: 2011Q4

REPORT INFORMATION
  Report Type: 
  Country: None (occurrence: None)
  Receive Date: 20111223
  Receipt Date: 20111213
  Transmission Date: 20120403
  Serious: Yes (Hospitalization, Other)
  Sender: FDA-Public Use
  Company Number: PHEH2011US008926

PATIENT
  Sex: Female

DRUGS (7)
  1. TASIGNA [Suspect]
     Indication: CHRONIC MYELOID LEUKAEMIA
     Dosage: 300 MG, BID
     Route: 048
     Dates: start: 20110527
  2. MEDROXYPROGESTERONE [Suspect]
     Dosage: 5 MG DAILY
  3. ESTRADIOL [Suspect]
     Dosage: 2 MG DAILY
  4. ASPIRIN [Suspect]
     Dosage: 81 MG DAILY
  5. AVALIDE [Suspect]
     Dosage: UNK UKN, UNK
  6. BETAMETHASONE DIPROPIONATE [Suspect]
     Dosage: UNK UKN, UNK
  7. METFORMIN HCL [Suspect]
     Dosage: 1000 MG DAILY

REACTIONS (2)
  - UTERINE HAEMORRHAGE [None]
  - VAGINAL HAEMORRHAGE [None]
